FAERS Safety Report 15711174 (Version 1)
Quarter: 2018Q4

REPORT INFORMATION
  Report Type: Spontaneous
  Country: CH (occurrence: CH)
  Receive Date: 20181211
  Receipt Date: 20181211
  Transmission Date: 20190205
  Serious: Yes (Death)
  Sender: FDA-Public Use
  Company Number: CH-CELGENEUS-CHE-20181202201

PATIENT
  Age: 75 Year
  Sex: Male

DRUGS (2)
  1. ICLUSIG [Concomitant]
     Active Substance: PONATINIB
     Indication: ACUTE LEUKAEMIA
     Route: 048
  2. AZACITIDINE. [Suspect]
     Active Substance: AZACITIDINE
     Indication: MYELOID LEUKAEMIA
     Route: 058
     Dates: start: 20160602

REACTIONS (1)
  - Death [Fatal]
